FAERS Safety Report 23820599 (Version 1)
Quarter: 2024Q2

REPORT INFORMATION
  Report Type: Spontaneous
  Country: DE (occurrence: DE)
  Receive Date: 20240506
  Receipt Date: 20240506
  Transmission Date: 20240716
  Serious: Yes (Death)
  Sender: FDA-Public Use
  Company Number: DE-MYLANLABS-2024M1040231

PATIENT
  Age: 30 Year
  Sex: Female

DRUGS (18)
  1. METHOTREXATE [Suspect]
     Active Substance: METHOTREXATE
     Indication: Familial haemophagocytic lymphohistiocytosis
     Dosage: LOW DOSE (UNSPECIFIED)
     Route: 065
  2. METHOTREXATE [Suspect]
     Active Substance: METHOTREXATE
     Indication: Large granular lymphocytosis
  3. CYCLOPHOSPHAMIDE [Suspect]
     Active Substance: CYCLOPHOSPHAMIDE
     Indication: Familial haemophagocytic lymphohistiocytosis
     Dosage: UNK
     Route: 065
  4. CYCLOPHOSPHAMIDE [Suspect]
     Active Substance: CYCLOPHOSPHAMIDE
     Indication: Large granular lymphocytosis
  5. DOXORUBICIN HYDROCHLORIDE [Suspect]
     Active Substance: DOXORUBICIN HYDROCHLORIDE
     Indication: Familial haemophagocytic lymphohistiocytosis
     Dosage: UNK
     Route: 065
  6. DOXORUBICIN HYDROCHLORIDE [Suspect]
     Active Substance: DOXORUBICIN HYDROCHLORIDE
     Indication: Large granular lymphocytosis
  7. VINCRISTINE SULFATE [Suspect]
     Active Substance: VINCRISTINE SULFATE
     Indication: Familial haemophagocytic lymphohistiocytosis
     Dosage: UNK
     Route: 065
  8. VINCRISTINE SULFATE [Suspect]
     Active Substance: VINCRISTINE SULFATE
     Indication: Large granular lymphocytosis
  9. PREDNISONE [Suspect]
     Active Substance: PREDNISONE
     Indication: Familial haemophagocytic lymphohistiocytosis
     Dosage: UNK
     Route: 065
  10. PREDNISONE [Suspect]
     Active Substance: PREDNISONE
     Indication: Large granular lymphocytosis
  11. DEXAMETHASONE [Suspect]
     Active Substance: DEXAMETHASONE
     Indication: Familial haemophagocytic lymphohistiocytosis
     Dosage: UNK
     Route: 065
  12. DEXAMETHASONE [Suspect]
     Active Substance: DEXAMETHASONE
     Indication: Large granular lymphocytosis
  13. ETOPOSIDE [Suspect]
     Active Substance: ETOPOSIDE
     Indication: Familial haemophagocytic lymphohistiocytosis
     Dosage: UNK UNK, QW
     Route: 065
  14. ETOPOSIDE [Suspect]
     Active Substance: ETOPOSIDE
     Indication: Large granular lymphocytosis
  15. ANAKINRA [Suspect]
     Active Substance: ANAKINRA
     Indication: Familial haemophagocytic lymphohistiocytosis
     Dosage: UNK
     Route: 065
  16. ANAKINRA [Suspect]
     Active Substance: ANAKINRA
     Indication: Large granular lymphocytosis
  17. RUXOLITINIB [Suspect]
     Active Substance: RUXOLITINIB
     Indication: Familial haemophagocytic lymphohistiocytosis
     Dosage: UNK
     Route: 065
  18. RUXOLITINIB [Suspect]
     Active Substance: RUXOLITINIB
     Indication: Large granular lymphocytosis

REACTIONS (1)
  - Drug ineffective [Fatal]
